FAERS Safety Report 7569594-1 (Version None)
Quarter: 2011Q2

REPORT INFORMATION
  Report Type: 
  Country: None (occurrence: None)
  Receive Date: 20110621
  Receipt Date: 20110621
  Transmission Date: 20111010
  Serious: Yes (Other)
  Sender: FDA-Public Use
  Company Number: None

PATIENT
  Sex: Female
  Weight: 49.8957 kg

DRUGS (1)
  1. VYTORIN [Suspect]
     Indication: BLOOD CHOLESTEROL INCREASED
     Dosage: 10-80MG 1 DAILY
     Dates: start: 20110113, end: 20110126

REACTIONS (3)
  - BONE PAIN [None]
  - ARTHRALGIA [None]
  - PAIN IN EXTREMITY [None]
